FAERS Safety Report 4430554-0 (Version None)
Quarter: 2004Q3

REPORT INFORMATION
  Report Type: 
  Country: None (occurrence: None)
  Receive Date: 20040818
  Receipt Date: 20040811
  Transmission Date: 20050211
  Serious: Yes (Other)
  Sender: FDA-Public Use
  Company Number: 2003-09-1656

PATIENT
  Age: 37 Year
  Sex: Male

DRUGS (2)
  1. PEG-INTRON [Suspect]
     Indication: HEPATITIS C
     Dosage: 80 MCG SUBCUTANEOUS
     Route: 058
  2. REBETOL [Suspect]
     Indication: HEPATITIS C
     Dosage: ORAL
     Route: 048

REACTIONS (7)
  - CELLULITIS [None]
  - INJECTION SITE SCAR [None]
  - INJECTION SITE ULCER [None]
  - MEDICATION ERROR [None]
  - SCAB [None]
  - SKIN DEPIGMENTATION [None]
  - SKIN NECROSIS [None]
